FAERS Safety Report 8369824-2 (Version None)
Quarter: 2012Q2

REPORT INFORMATION
  Report Type: 
  Country: None (occurrence: None)
  Receive Date: 20120518
  Receipt Date: 20120514
  Transmission Date: 20120825
  Serious: Yes (Hospitalization)
  Sender: FDA-Public Use
  Company Number: DE-AMGEN-DEUCT2011057822

PATIENT
  Age: 59 Year
  Sex: Male

DRUGS (4)
  1. PANITUMUMAB [Suspect]
     Indication: GASTRIC CANCER
     Dosage: UNK
     Route: 042
     Dates: start: 20110930
  2. CISPLATIN [Concomitant]
     Indication: GASTRIC CANCER
     Dosage: 140 MG/M2, UNK
     Route: 042
     Dates: start: 20110930
  3. CAPECITABINE [Concomitant]
     Indication: GASTRIC CANCER
     Dosage: UNK
     Route: 048
     Dates: start: 20110930
  4. EPIRUBICIN [Concomitant]
     Indication: GASTRIC CANCER
     Dosage: 100 MG/M2, UNK
     Route: 042
     Dates: start: 20110930

REACTIONS (2)
  - VENOUS THROMBOSIS [None]
  - PULMONARY EMBOLISM [None]
